FAERS Safety Report 5109375-1 (Version None)
Quarter: 2006Q3

REPORT INFORMATION
  Report Type: 
  Country: None (occurrence: None)
  Receive Date: 20060920
  Receipt Date: 20060913
  Transmission Date: 20061208
  Serious: Yes (Hospitalization)
  Sender: FDA-Public Use
  Company Number: SE-BRISTOL-MYERS SQUIBB COMPANY-13507637

PATIENT
  Age: 88 Year
  Sex: Female

DRUGS (2)
  1. APROVEL [Suspect]
     Indication: HYPERTONIA
     Route: 048
  2. NORMORIX [Concomitant]

REACTIONS (5)
  - BLOOD CREATININE INCREASED [None]
  - DIZZINESS [None]
  - HYPERPARATHYROIDISM [None]
  - RENAL IMPAIRMENT [None]
  - UROSEPSIS [None]
